FAERS Safety Report 10945086 (Version 1)
Quarter: 2015Q1

REPORT INFORMATION
  Report Type: Spontaneous
  Country: SE (occurrence: SE)
  Receive Date: 20150323
  Receipt Date: 20150323
  Transmission Date: 20150721
  Serious: Yes (Hospitalization)
  Sender: FDA-Public Use
  Company Number: SE-JNJFOC-20150308780

PATIENT
  Age: 89 Year
  Sex: Female

DRUGS (7)
  1. INOLAXOL [Concomitant]
     Route: 065
  2. METOPROLOL [Concomitant]
     Active Substance: METOPROLOL
     Route: 065
  3. OMEPRAZOLE. [Concomitant]
     Active Substance: OMEPRAZOLE
     Route: 065
  4. RISPERDAL [Suspect]
     Active Substance: RISPERIDONE
     Indication: PRODUCT USED FOR UNKNOWN INDICATION
     Route: 048
     Dates: start: 2008, end: 20140824
  5. FELODIPINE. [Concomitant]
     Active Substance: FELODIPINE
     Route: 065
  6. TEMESTA [Concomitant]
     Active Substance: LORAZEPAM
     Route: 065
  7. PANODIL [Concomitant]
     Active Substance: ACETAMINOPHEN
     Route: 065

REACTIONS (3)
  - Dysarthria [Recovered/Resolved]
  - Dysphagia [Recovered/Resolved]
  - VIIth nerve paralysis [Recovered/Resolved]

NARRATIVE: CASE EVENT DATE: 201408
